FAERS Safety Report 6771129-8 (Version None)
Quarter: 2010Q2

REPORT INFORMATION
  Report Type: 
  Country: None (occurrence: None)
  Receive Date: 20100616
  Receipt Date: 20100609
  Transmission Date: 20101027
  Serious: Yes (Death, Other)
  Sender: FDA-Public Use
  Company Number: US-BAYER-201028503GPV

PATIENT

DRUGS (6)
  1. ALEMTUZUMAB [Suspect]
     Indication: WALDENSTROM'S MACROGLOBULINAEMIA
     Dosage: TEST DOSE
     Route: 042
  2. ALEMTUZUMAB [Suspect]
     Dosage: TEST DOSE
     Route: 042
  3. ALEMTUZUMAB [Suspect]
     Dosage: TEST DOSE
     Route: 042
  4. ALEMTUZUMAB [Suspect]
     Route: 042
  5. ACYCLOVIR [Concomitant]
     Indication: PROPHYLAXIS
  6. BACTRIM [Concomitant]
     Indication: PROPHYLAXIS

REACTIONS (2)
  - CYTOMEGALOVIRUS INFECTION [None]
  - DEATH [None]
